FAERS Safety Report 21197925 (Version 1)
Quarter: 2022Q3

REPORT INFORMATION
  Report Type: Report from Study
  Country: US (occurrence: US)
  Receive Date: 20220810
  Receipt Date: 20220810
  Transmission Date: 20221027
  Serious: Yes (Hospitalization, Other)
  Sender: FDA-Public Use
  Company Number: US-BRISTOL-MYERS SQUIBB COMPANY-2022-067831

PATIENT
  Age: 69 Year
  Sex: Female
  Weight: 89.8 kg

DRUGS (13)
  1. AZACITIDINE [Suspect]
     Active Substance: AZACITIDINE
     Indication: Myelodysplastic syndrome
     Dosage: FOR 7 DAYS WITHIN THE FIRST 9 CALENDAR DAYS OF EACH 28-DAY CYCLE
     Route: 042
     Dates: start: 20220613
  2. LEMZOPARLIMAB [Suspect]
     Active Substance: LEMZOPARLIMAB
     Indication: Myelodysplastic syndrome
     Dosage: ON DAYS 1, 8, 15, AND 22 OF A 28-DAY CYCLE (45 MG/KG,1 IN 1 WK)
     Route: 042
     Dates: start: 20220620
  3. ELETRIPTAN [Concomitant]
     Active Substance: ELETRIPTAN
     Indication: Migraine
     Dosage: 1 AS NEEDED
     Route: 048
     Dates: start: 2002
  4. ALPRAZOLAM [Concomitant]
     Active Substance: ALPRAZOLAM
     Indication: Anxiety
     Dosage: 1 AS REQUIRED
     Route: 048
     Dates: start: 202205
  5. BUPROPION [Concomitant]
     Active Substance: BUPROPION
     Indication: Depression
     Dosage: 1 IN 1 D
     Route: 048
     Dates: start: 2019
  6. METOPROLOL SUCCINATE [Concomitant]
     Active Substance: METOPROLOL SUCCINATE
     Indication: Palpitations
     Dosage: 1 IN 1 D
     Route: 048
     Dates: start: 2014
  7. CALCIUM CITRATE + D3 [Concomitant]
     Indication: Nutritional supplementation
     Dosage: 1 IN 1 D
     Route: 048
     Dates: start: 2014
  8. CETIRIZINE [Concomitant]
     Active Substance: CETIRIZINE HYDROCHLORIDE
     Indication: Seasonal allergy
     Dosage: 1 IN 1 D
     Route: 048
     Dates: start: 2012
  9. MAGNESIUM OXIDE [Concomitant]
     Active Substance: MAGNESIUM OXIDE
     Indication: Nutritional supplementation
     Dosage: 1 IN 1 D
     Route: 048
     Dates: start: 202205
  10. MELOXICAM [Concomitant]
     Active Substance: MELOXICAM
     Indication: Arthritis
     Dosage: 1 IN 1 D
     Route: 048
     Dates: start: 2013
  11. OMEPRAZOLE [Concomitant]
     Active Substance: OMEPRAZOLE
     Indication: Arthritis
     Dosage: 1 IN 1 D
     Route: 048
     Dates: start: 2021
  12. LEVOTHYROXINE [Concomitant]
     Active Substance: LEVOTHYROXINE
     Indication: Hypothyroidism
     Route: 048
     Dates: start: 2013
  13. ZOLPIDEM [Concomitant]
     Active Substance: ZOLPIDEM TARTRATE
     Indication: Arthritis
     Route: 048
     Dates: start: 2019

REACTIONS (1)
  - Neutropenic colitis [Recovered/Resolved]

NARRATIVE: CASE EVENT DATE: 20220621
